FAERS Safety Report 10102287 (Version 1)
Quarter: 2014Q2

REPORT INFORMATION
  Report Type: Spontaneous
  Country: US (occurrence: US)
  Receive Date: 20140424
  Receipt Date: 20140424
  Transmission Date: 20141212
  Serious: No
  Sender: FDA-Public Use
  Company Number: US-TEVA-477608USA

PATIENT
  Sex: Female

DRUGS (1)
  1. CLARAVIS [Suspect]
     Dates: start: 20131125, end: 20140226

REACTIONS (1)
  - Blood triglycerides increased [Unknown]
